FAERS Safety Report 9281646 (Version 1)
Quarter: 2013Q2

REPORT INFORMATION
  Report Type: Spontaneous
  Country: US (occurrence: US)
  Receive Date: 20130509
  Receipt Date: 20130509
  Transmission Date: 20140414
  Serious: Yes (Hospitalization)
  Sender: FDA-Public Use
  Company Number: US-MYLANLABS-2013S1009380

PATIENT
  Age: 84 Year
  Sex: Male

DRUGS (1)
  1. DIGOXIN [Suspect]
     Dosage: 0.25MG DAILY
     Route: 065

REACTIONS (5)
  - Toxicity to various agents [Recovered/Resolved]
  - Vision blurred [Recovered/Resolved]
  - Headache [Recovered/Resolved]
  - Balance disorder [Recovered/Resolved]
  - Atrial fibrillation [Recovered/Resolved]
